FAERS Safety Report 18715799 (Version 1)
Quarter: 2021Q1

REPORT INFORMATION
  Report Type: Spontaneous
  Country: CA (occurrence: CA)
  Receive Date: 20210108
  Receipt Date: 20210108
  Transmission Date: 20210419
  Serious: Yes (Other)
  Sender: FDA-Public Use
  Company Number: CA-JNJFOC-20210108485

PATIENT
  Age: 49 Year
  Sex: Male

DRUGS (1)
  1. INFLIXIMAB, RECOMBINANT [Suspect]
     Active Substance: INFLIXIMAB
     Indication: ANKYLOSING SPONDYLITIS
     Dosage: CYCLICAL
     Route: 042

REACTIONS (4)
  - Tendon injury [Unknown]
  - Off label use [Unknown]
  - Intentional product use issue [Unknown]
  - Skin laceration [Unknown]
